FAERS Safety Report 25831174 (Version 1)
Quarter: 2025Q3

REPORT INFORMATION
  Report Type: Spontaneous
  Country: US (occurrence: US)
  Receive Date: 20250922
  Receipt Date: 20250922
  Transmission Date: 20251021
  Serious: No
  Sender: ITALFARMACO SPA
  Company Number: US-ITALFARMACO SPA-2184997

PATIENT
  Age: 9 Year
  Sex: Male
  Weight: 30.80 kg

DRUGS (1)
  1. DUVYZAT [Suspect]
     Active Substance: GIVINOSTAT
     Dates: start: 20250818

REACTIONS (4)
  - Rhabdomyolysis [Recovered/Resolved]
  - Off label use [Unknown]
  - Blood creatine phosphokinase increased [Recovered/Resolved]
  - Pain [Recovered/Resolved]
